FAERS Safety Report 25224819 (Version 1)
Quarter: 2025Q2

REPORT INFORMATION
  Report Type: Spontaneous
  Country: GB (occurrence: GB)
  Receive Date: 20250422
  Receipt Date: 20250422
  Transmission Date: 20250716
  Serious: Yes (Disabling, Other)
  Sender: MYLAN
  Company Number: GB-MHRA-TPP18504964C15936601YC1744890773394

PATIENT
  Age: 72 Year
  Sex: Female
  Weight: 78 kg

DRUGS (44)
  1. ATORVASTATIN [Suspect]
     Active Substance: ATORVASTATIN
     Indication: Blood cholesterol increased
     Dosage: 10 MILLIGRAM, QD (TAKE ONE TABLET ONCE A DAY TO LOWER CHOLESTEROL)
     Dates: start: 20250313, end: 20250410
  2. ATORVASTATIN [Suspect]
     Active Substance: ATORVASTATIN
     Dosage: 10 MILLIGRAM, QD (TAKE ONE TABLET ONCE A DAY TO LOWER CHOLESTEROL)
     Route: 065
     Dates: start: 20250313, end: 20250410
  3. ATORVASTATIN [Suspect]
     Active Substance: ATORVASTATIN
     Dosage: 10 MILLIGRAM, QD (TAKE ONE TABLET ONCE A DAY TO LOWER CHOLESTEROL)
     Route: 065
     Dates: start: 20250313, end: 20250410
  4. ATORVASTATIN [Suspect]
     Active Substance: ATORVASTATIN
     Dosage: 10 MILLIGRAM, QD (TAKE ONE TABLET ONCE A DAY TO LOWER CHOLESTEROL)
     Dates: start: 20250313, end: 20250410
  5. MELOXICAM [Concomitant]
     Active Substance: MELOXICAM
     Indication: Ill-defined disorder
     Dosage: 1 DOSAGE FORM, QD (TAKE ONE TABLET ONCE A DAY)
     Dates: start: 20240814, end: 20250218
  6. MELOXICAM [Concomitant]
     Active Substance: MELOXICAM
     Dosage: 1 DOSAGE FORM, QD (TAKE ONE TABLET ONCE A DAY)
     Route: 065
     Dates: start: 20240814, end: 20250218
  7. MELOXICAM [Concomitant]
     Active Substance: MELOXICAM
     Dosage: 1 DOSAGE FORM, QD (TAKE ONE TABLET ONCE A DAY)
     Route: 065
     Dates: start: 20240814, end: 20250218
  8. MELOXICAM [Concomitant]
     Active Substance: MELOXICAM
     Dosage: 1 DOSAGE FORM, QD (TAKE ONE TABLET ONCE A DAY)
     Dates: start: 20240814, end: 20250218
  9. AMITRIPTYLINE HYDROCHLORIDE [Concomitant]
     Active Substance: AMITRIPTYLINE HYDROCHLORIDE
     Indication: Ill-defined disorder
     Dosage: 1 DOSAGE FORM, PM (1 EVERY NIGHT)
     Dates: start: 20240814
  10. AMITRIPTYLINE HYDROCHLORIDE [Concomitant]
     Active Substance: AMITRIPTYLINE HYDROCHLORIDE
     Dosage: 1 DOSAGE FORM, PM (1 EVERY NIGHT)
     Route: 065
     Dates: start: 20240814
  11. AMITRIPTYLINE HYDROCHLORIDE [Concomitant]
     Active Substance: AMITRIPTYLINE HYDROCHLORIDE
     Dosage: 1 DOSAGE FORM, PM (1 EVERY NIGHT)
     Route: 065
     Dates: start: 20240814
  12. AMITRIPTYLINE HYDROCHLORIDE [Concomitant]
     Active Substance: AMITRIPTYLINE HYDROCHLORIDE
     Dosage: 1 DOSAGE FORM, PM (1 EVERY NIGHT)
     Dates: start: 20240814
  13. CO-DYDRAMOL [Concomitant]
     Active Substance: ACETAMINOPHEN\DIHYDROCODEINE
     Indication: Ill-defined disorder
     Dosage: UNK, QID (ONE OR TWO FOUR TIMES A DAY WHEN REQUIRED)
     Dates: start: 20240814
  14. CO-DYDRAMOL [Concomitant]
     Active Substance: ACETAMINOPHEN\DIHYDROCODEINE
     Dosage: UNK, QID (ONE OR TWO FOUR TIMES A DAY WHEN REQUIRED)
     Route: 065
     Dates: start: 20240814
  15. CO-DYDRAMOL [Concomitant]
     Active Substance: ACETAMINOPHEN\DIHYDROCODEINE
     Dosage: UNK, QID (ONE OR TWO FOUR TIMES A DAY WHEN REQUIRED)
     Route: 065
     Dates: start: 20240814
  16. CO-DYDRAMOL [Concomitant]
     Active Substance: ACETAMINOPHEN\DIHYDROCODEINE
     Dosage: UNK, QID (ONE OR TWO FOUR TIMES A DAY WHEN REQUIRED)
     Dates: start: 20240814
  17. LACTULOSE [Concomitant]
     Active Substance: LACTULOSE
     Indication: Ill-defined disorder
     Dosage: 15 MILLILITER, BID (15ML TWICE DAILY)
     Dates: start: 20240814
  18. LACTULOSE [Concomitant]
     Active Substance: LACTULOSE
     Dosage: 15 MILLILITER, BID (15ML TWICE DAILY)
     Route: 065
     Dates: start: 20240814
  19. LACTULOSE [Concomitant]
     Active Substance: LACTULOSE
     Dosage: 15 MILLILITER, BID (15ML TWICE DAILY)
     Route: 065
     Dates: start: 20240814
  20. LACTULOSE [Concomitant]
     Active Substance: LACTULOSE
     Dosage: 15 MILLILITER, BID (15ML TWICE DAILY)
     Dates: start: 20240814
  21. LANSOPRAZOLE [Concomitant]
     Active Substance: LANSOPRAZOLE
     Indication: Ill-defined disorder
     Dosage: 1 DOSAGE FORM, QD (TAKE ONE ONCE DAILY)
     Dates: start: 20240814
  22. LANSOPRAZOLE [Concomitant]
     Active Substance: LANSOPRAZOLE
     Dosage: 1 DOSAGE FORM, QD (TAKE ONE ONCE DAILY)
     Route: 065
     Dates: start: 20240814
  23. LANSOPRAZOLE [Concomitant]
     Active Substance: LANSOPRAZOLE
     Dosage: 1 DOSAGE FORM, QD (TAKE ONE ONCE DAILY)
     Route: 065
     Dates: start: 20240814
  24. LANSOPRAZOLE [Concomitant]
     Active Substance: LANSOPRAZOLE
     Dosage: 1 DOSAGE FORM, QD (TAKE ONE ONCE DAILY)
     Dates: start: 20240814
  25. LATANOPROST [Concomitant]
     Active Substance: LATANOPROST
     Indication: Ill-defined disorder
     Dosage: 1 DOSAGE FORM, PM (1 DROP EVERY DAY IN EVENING)
     Dates: start: 20240814
  26. LATANOPROST [Concomitant]
     Active Substance: LATANOPROST
     Dosage: 1 DOSAGE FORM, PM (1 DROP EVERY DAY IN EVENING)
     Route: 065
     Dates: start: 20240814
  27. LATANOPROST [Concomitant]
     Active Substance: LATANOPROST
     Dosage: 1 DOSAGE FORM, PM (1 DROP EVERY DAY IN EVENING)
     Route: 065
     Dates: start: 20240814
  28. LATANOPROST [Concomitant]
     Active Substance: LATANOPROST
     Dosage: 1 DOSAGE FORM, PM (1 DROP EVERY DAY IN EVENING)
     Dates: start: 20240814
  29. LORAZEPAM [Concomitant]
     Active Substance: LORAZEPAM
     Indication: Ill-defined disorder
     Dosage: UNK, QD (ONE OR TWO DAILY)
     Dates: start: 20240814
  30. LORAZEPAM [Concomitant]
     Active Substance: LORAZEPAM
     Dosage: UNK, QD (ONE OR TWO DAILY)
     Route: 065
     Dates: start: 20240814
  31. LORAZEPAM [Concomitant]
     Active Substance: LORAZEPAM
     Dosage: UNK, QD (ONE OR TWO DAILY)
     Route: 065
     Dates: start: 20240814
  32. LORAZEPAM [Concomitant]
     Active Substance: LORAZEPAM
     Dosage: UNK, QD (ONE OR TWO DAILY)
     Dates: start: 20240814
  33. MOMETASONE [Concomitant]
     Active Substance: MOMETASONE
     Indication: Ill-defined disorder
     Dosage: 2 DOSAGE FORM, QD (SPRAY TWO DOSES INTO EACH NOSTRIL ONCE A DAY)
     Dates: start: 20240814
  34. MOMETASONE [Concomitant]
     Active Substance: MOMETASONE
     Dosage: 2 DOSAGE FORM, QD (SPRAY TWO DOSES INTO EACH NOSTRIL ONCE A DAY)
     Route: 065
     Dates: start: 20240814
  35. MOMETASONE [Concomitant]
     Active Substance: MOMETASONE
     Dosage: 2 DOSAGE FORM, QD (SPRAY TWO DOSES INTO EACH NOSTRIL ONCE A DAY)
     Route: 065
     Dates: start: 20240814
  36. MOMETASONE [Concomitant]
     Active Substance: MOMETASONE
     Dosage: 2 DOSAGE FORM, QD (SPRAY TWO DOSES INTO EACH NOSTRIL ONCE A DAY)
     Dates: start: 20240814
  37. Hydramed [Concomitant]
     Indication: Ill-defined disorder
     Dosage: 1 DOSAGE FORM, QID (PUT ONE DROP INTO BOTH EYES FOUR TIMES A DAY AS...)
     Dates: start: 20250203
  38. Hydramed [Concomitant]
     Dosage: 1 DOSAGE FORM, QID (PUT ONE DROP INTO BOTH EYES FOUR TIMES A DAY AS...)
     Route: 065
     Dates: start: 20250203
  39. Hydramed [Concomitant]
     Dosage: 1 DOSAGE FORM, QID (PUT ONE DROP INTO BOTH EYES FOUR TIMES A DAY AS...)
     Route: 065
     Dates: start: 20250203
  40. Hydramed [Concomitant]
     Dosage: 1 DOSAGE FORM, QID (PUT ONE DROP INTO BOTH EYES FOUR TIMES A DAY AS...)
     Dates: start: 20250203
  41. Hydramed night [Concomitant]
     Indication: Ill-defined disorder
     Dosage: UNK, PM (USE 1CM  AS DIRECTED TO BOTH EYES AT NIGHT)
     Dates: start: 20250203
  42. Hydramed night [Concomitant]
     Dosage: UNK, PM (USE 1CM  AS DIRECTED TO BOTH EYES AT NIGHT)
     Route: 065
     Dates: start: 20250203
  43. Hydramed night [Concomitant]
     Dosage: UNK, PM (USE 1CM  AS DIRECTED TO BOTH EYES AT NIGHT)
     Route: 065
     Dates: start: 20250203
  44. Hydramed night [Concomitant]
     Dosage: UNK, PM (USE 1CM  AS DIRECTED TO BOTH EYES AT NIGHT)
     Dates: start: 20250203

REACTIONS (3)
  - Headache [Recovered/Resolved]
  - Dizziness [Recovered/Resolved]
  - Myalgia [Recovered/Resolved]
